FAERS Safety Report 9306063 (Version 1)
Quarter: 2013Q2

REPORT INFORMATION
  Report Type: Spontaneous
  Country: US (occurrence: US)
  Receive Date: 20130523
  Receipt Date: 20130523
  Transmission Date: 20140414
  Serious: No
  Sender: FDA-Public Use
  Company Number: US-PFIZER INC-2013157209

PATIENT
  Age: 51 Year
  Sex: Female
  Weight: 58.96 kg

DRUGS (8)
  1. EFFEXOR [Suspect]
     Indication: DEPRESSION
     Dosage: 150 MG, DAILY
     Dates: start: 2012, end: 201305
  2. PEPTO-BISMOL [Suspect]
     Indication: ABDOMINAL PAIN UPPER
     Dosage: ONE TEASPOON (UNKNOWN DOSE), 2X/DAY
     Route: 048
  3. PEPTO-BISMOL [Suspect]
     Indication: VOMITING
  4. PRILOSEC [Suspect]
     Indication: GASTROOESOPHAGEAL REFLUX DISEASE
     Dosage: 20 MG, DAILY
     Route: 048
  5. LYRICA [Concomitant]
     Indication: ARTHRITIS
     Dosage: 100 MG, 2X/DAY
     Route: 048
  6. OXYBUTYNIN [Concomitant]
     Indication: BLADDER DISORDER
     Dosage: 5 MG, 2X/DAY
     Route: 048
  7. HYDROCHLOROTHIAZIDE [Concomitant]
     Indication: HYPERTENSION
     Dosage: 25 MG, DAILY
     Route: 048
  8. CLARITIN [Concomitant]
     Indication: SINUSITIS
     Dosage: 10 MG, DAILY
     Route: 048

REACTIONS (7)
  - Chest pain [Not Recovered/Not Resolved]
  - Arthralgia [Not Recovered/Not Resolved]
  - Abdominal pain upper [Not Recovered/Not Resolved]
  - Hyperhidrosis [Not Recovered/Not Resolved]
  - Malaise [Not Recovered/Not Resolved]
  - Vomiting [Not Recovered/Not Resolved]
  - Drug ineffective [Unknown]
